FAERS Safety Report 12726043 (Version 3)
Quarter: 2016Q3

REPORT INFORMATION
  Report Type: Spontaneous
  Country: NL (occurrence: NL)
  Receive Date: 20160908
  Receipt Date: 20160916
  Transmission Date: 20161109
  Serious: Yes (Other)
  Sender: FDA-Public Use
  Company Number: NL-MYLANLABS-2016M1037970

PATIENT

DRUGS (1)
  1. EPIPEN [Suspect]
     Active Substance: EPINEPHRINE
     Indication: ANAPHYLACTIC REACTION
     Dosage: SINGLE ADMINISTRATION
     Route: 058
     Dates: start: 20160818

REACTIONS (6)
  - Injection site pallor [Recovered/Resolved]
  - Drug administered at inappropriate site [Recovered/Resolved]
  - Accidental exposure to product [Recovered/Resolved]
  - Injection site coldness [Recovered/Resolved]
  - Vasoconstriction [Recovered/Resolved]
  - Hypoaesthesia [Recovered/Resolved]

NARRATIVE: CASE EVENT DATE: 20160819
